FAERS Safety Report 6555107-X (Version None)
Quarter: 2010Q1

REPORT INFORMATION
  Report Type: 
  Country: None (occurrence: None)
  Receive Date: 20100126
  Receipt Date: 20100126
  Transmission Date: 20100710
  Serious: No
  Sender: FDA-Public Use
  Company Number: None

PATIENT
  Sex: Female
  Weight: 63.5036 kg

DRUGS (1)
  1. YASMIN [Suspect]
     Indication: ORAL CONTRACEPTION
     Dosage: 1 TABLET DAILY ORAL
     Route: 048

REACTIONS (4)
  - CHEST PAIN [None]
  - LABORATORY TEST ABNORMAL [None]
  - POOR PERIPHERAL CIRCULATION [None]
  - SYSTEMIC LUPUS ERYTHEMATOSUS [None]
